FAERS Safety Report 17214840 (Version 1)
Quarter: 2019Q4

REPORT INFORMATION
  Report Type: Spontaneous
  Country: DE (occurrence: DE)
  Receive Date: 20191230
  Receipt Date: 20191230
  Transmission Date: 20200122
  Serious: Yes (Congenital Anomaly)
  Sender: FDA-Public Use
  Company Number: DE-MYLANLABS-2019M1128450

PATIENT
  Age: 1 Day
  Sex: Female
  Weight: 4.23 kg

DRUGS (5)
  1. MIRTAZAPIN [Concomitant]
     Active Substance: MIRTAZAPINE
     Indication: MORNING SICKNESS
     Dosage: 30 [MG/D (4X 7.5 MG, MAX.) ]/ ALTOGETHER TAKEN ON FOUR DAYS 4 SEPARATED DOSES
     Route: 064
     Dates: start: 20180315, end: 20180318
  2. ACICLOVIR [Concomitant]
     Active Substance: ACYCLOVIR
     Indication: ORAL HERPES
     Dosage: AT THE END OF THE FIRST TRIMESTER AND IN THE THIRD TRIMESTER FOR ONE WEEK EACH.
     Route: 064
  3. PARACETAMOL [Concomitant]
     Active Substance: ACETAMINOPHEN
     Indication: HEADACHE
     Dosage: 1000 [MG/D (BIS 500, BEI BEDARF) ]/ IF NEEDED
     Route: 064
  4. VOMEX A [Concomitant]
     Active Substance: DIMENHYDRINATE
     Indication: MORNING SICKNESS
     Dosage: 300 [MG/D ]/ UNKNOWN HOW OFTEN I.V. AND HOW OFTEN ORALLY.
     Route: 064
  5. CITALOPRAM [Suspect]
     Active Substance: CITALOPRAM HYDROBROMIDE
     Indication: DEPRESSION
     Dosage: 40 [MG/D ]
     Route: 064
     Dates: start: 20171222, end: 20181001

REACTIONS (2)
  - Developmental hip dysplasia [Unknown]
  - Foetal exposure during pregnancy [Unknown]

NARRATIVE: CASE EVENT DATE: 20181001
